FAERS Safety Report 4443930-7 (Version None)
Quarter: 2004Q3

REPORT INFORMATION
  Report Type: 
  Country: None (occurrence: None)
  Receive Date: 20040729
  Receipt Date: 20040415
  Transmission Date: 20050211
  Serious: Yes (Hospitalization)
  Sender: FDA-Public Use
  Company Number: NSADSS2002026047

PATIENT
  Age: 77 Year
  Sex: Male

DRUGS (6)
  1. RISPERDAL [Suspect]
     Indication: AGITATION
     Dosage: 0.5 MG, 1 IN 1 DAY, ORAL
     Route: 048
     Dates: end: 20020606
  2. STUDY MEDICATION (THIAZIDES) [Suspect]
     Indication: DEMENTIA ALZHEIMER'S TYPE
  3. PLACEBO (PLACEBO) [Suspect]
     Indication: DEMENTIA
  4. GLUCOTROL [Concomitant]
  5. GLUCOPHAGE (UNSPECIFIED) METFORMIN HYDROCHLORIDE [Concomitant]
  6. CALAN SR (VERAPAMIL HYDROCHLORIDE) UNSPECIFIED [Concomitant]

REACTIONS (1)
  - EXTRAPYRAMIDAL DISORDER [None]
